FAERS Safety Report 7949081-9 (Version None)
Quarter: 2011Q4

REPORT INFORMATION
  Report Type: 
  Country: None (occurrence: None)
  Receive Date: 20111125
  Receipt Date: 20111112
  Transmission Date: 20120403
  Serious: Yes (Hospitalization, Other)
  Sender: FDA-Public Use
  Company Number: CIP11000521

PATIENT
  Age: 67 Year
  Sex: Female

DRUGS (7)
  1. ACTONEL [Suspect]
     Dosage: ORAL
     Route: 048
  2. FOSAMAX [Suspect]
     Indication: OSTEOPOROSIS
     Dosage: 5 MG,
     Dates: start: 19980101, end: 20040101
  3. BONIVA [Suspect]
     Indication: OSTEOPOROSIS
     Dosage: 150 MG, 1/MONTH, ORAL
     Route: 048
     Dates: start: 20060101, end: 20081104
  4. BONIVA [Suspect]
     Indication: OSTEOPOROSIS
     Dosage: 150 MG, 1/MONTH, ORAL
     Route: 048
     Dates: start: 20090526, end: 20100301
  5. ALENDRONATE SODIUM [Suspect]
     Indication: OSTEOPOROSIS
     Dosage: 70 MG, 1/WEEK,
     Dates: start: 20081104, end: 20090526
  6. FOSAMAX [Suspect]
     Indication: OSTEOPOROSIS
     Dosage: 70 MG, 1/WEEK, ORAL
     Route: 048
     Dates: start: 20040101, end: 20060101
  7. DIDRONEL [Suspect]
     Indication: OSTEOPOROSIS
     Dosage: ORAL
     Route: 048

REACTIONS (17)
  - FRACTURE DISPLACEMENT [None]
  - PAIN IN EXTREMITY [None]
  - MUSCLE DISORDER [None]
  - GAIT DISTURBANCE [None]
  - SCIATICA [None]
  - MYOPATHY [None]
  - DEVICE BREAKAGE [None]
  - MUSCULAR WEAKNESS [None]
  - ANKLE FRACTURE [None]
  - ARTHRALGIA [None]
  - FEMUR FRACTURE [None]
  - FALL [None]
  - FRACTURE NONUNION [None]
  - JOINT INSTABILITY [None]
  - MYALGIA [None]
  - SYNOVIAL CYST [None]
  - ASTHENIA [None]
